FAERS Safety Report 10468355 (Version 2)
Quarter: 2014Q3

REPORT INFORMATION
  Report Type: Spontaneous
  Country: US (occurrence: US)
  Receive Date: 20140922
  Receipt Date: 20140922
  Transmission Date: 20150326
  Serious: No
  Sender: FDA-Public Use
  Company Number: US-ALLERGAN-1415299US

PATIENT
  Age: 72 Year
  Sex: Female

DRUGS (6)
  1. LASTACAFT [Suspect]
     Active Substance: ALCAFTADINE
     Indication: SEASONAL ALLERGY
     Dosage: UNK
     Route: 047
     Dates: start: 20140510
  2. LUMIGAN [Concomitant]
     Active Substance: BIMATOPROST
     Indication: PRODUCT USED FOR UNKNOWN INDICATION
     Dosage: UNK UNK, QHS
  3. AZASITE [Concomitant]
     Active Substance: AZITHROMYCIN MONOHYDRATE
     Indication: SECRETION DISCHARGE
     Dosage: UNK UNK, BID
  4. LASTACAFT [Suspect]
     Active Substance: ALCAFTADINE
     Indication: EYE PRURITUS
  5. ALPHAGAN P [Concomitant]
     Active Substance: BRIMONIDINE TARTRATE
     Indication: PRODUCT USED FOR UNKNOWN INDICATION
     Dosage: UNK UNK, BID
  6. AZASITE [Concomitant]
     Active Substance: AZITHROMYCIN MONOHYDRATE
     Dosage: UNK, QD

REACTIONS (4)
  - Eyelid skin dryness [Unknown]
  - Inappropriate schedule of drug administration [Unknown]
  - Dry eye [Unknown]
  - Ocular hyperaemia [Recovered/Resolved]

NARRATIVE: CASE EVENT DATE: 20140704
